FAERS Safety Report 8718655 (Version 4)
Quarter: 2014Q1

REPORT INFORMATION
  Report Type: Spontaneous
  Country: US (occurrence: US)
  Receive Date: 20120810
  Receipt Date: 20140205
  Transmission Date: 20141002
  Serious: No
  Sender: FDA-Public Use
  Company Number: US-ASTRAZENECA-2012SE26663

PATIENT
  Age: 82 Year
  Sex: Female
  Weight: 57.2 kg

DRUGS (9)
  1. ARIMIDEX [Suspect]
     Indication: NEOPLASM MALIGNANT
     Dosage: GENERIC
     Route: 048
     Dates: start: 201212
  2. ARIMIDEX [Suspect]
     Indication: NEOPLASM MALIGNANT
     Route: 048
     Dates: start: 2012, end: 2013
  3. ARIMIDEX [Suspect]
     Indication: NEOPLASM MALIGNANT
     Dosage: GENERIC, 1 MG DAILY
     Route: 048
     Dates: start: 2013, end: 2013
  4. ARIMIDEX [Suspect]
     Indication: NEOPLASM MALIGNANT
     Route: 048
     Dates: start: 2013, end: 2013
  5. ARIMIDEX [Suspect]
     Indication: NEOPLASM MALIGNANT
     Route: 048
     Dates: start: 201401
  6. VERAPAMIL [Concomitant]
     Indication: HYPERTENSION
     Dosage: 240 BR. DAILY
  7. HYDRALAZINE [Concomitant]
     Indication: HYPERTENSION
  8. HYDROCHLOROT [Concomitant]
     Indication: FLUID REPLACEMENT
     Dates: start: 2009
  9. BIOTIN [Concomitant]

REACTIONS (6)
  - Macular degeneration [Unknown]
  - Age-related macular degeneration [Unknown]
  - Alopecia [Recovered/Resolved]
  - Drug dose omission [Recovered/Resolved]
  - Expired drug administered [Unknown]
  - Intentional drug misuse [Unknown]
